FAERS Safety Report 10360881 (Version 1)
Quarter: 2014Q3

REPORT INFORMATION
  Report Type: Spontaneous
  Country: GB (occurrence: None)
  Receive Date: 20140731
  Receipt Date: 20140731
  Transmission Date: 20150326
  Serious: Yes (Hospitalization, Other)
  Sender: FDA-Public Use
  Company Number: AUR-APL-2014-08011

PATIENT
  Age: 25 Year
  Sex: Male
  Weight: 80 kg

DRUGS (2)
  1. MIRTAZAPINE (MIRTAZAPINE) UNKNOWN, UNKNOWN [Suspect]
     Active Substance: MIRTAZAPINE
     Indication: DEPRESSION
     Route: 048
     Dates: start: 20140606, end: 20140620
  2. FLUOXETINE (FLUOXETINE) UNKNOWN [Suspect]
     Active Substance: FLUOXETINE HYDROCHLORIDE
     Indication: DEPRESSION
     Route: 048
     Dates: start: 20140509, end: 20140606

REACTIONS (15)
  - Dyspnoea [None]
  - Apparent death [None]
  - Nightmare [None]
  - Tremor [None]
  - Mental disorder [None]
  - Night sweats [None]
  - Vomiting [None]
  - Chills [None]
  - Chest discomfort [None]
  - Diarrhoea [None]
  - Phobia [None]
  - Muscle spasms [None]
  - Withdrawal syndrome [None]
  - Drug withdrawal syndrome [None]
  - Panic attack [None]

NARRATIVE: CASE EVENT DATE: 20140628
